FAERS Safety Report 12850868 (Version 2)
Quarter: 2016Q4

REPORT INFORMATION
  Report Type: Report from Study
  Country: IT (occurrence: IT)
  Receive Date: 20161014
  Receipt Date: 20161017
  Transmission Date: 20170207
  Serious: No
  Sender: FDA-Public Use
  Company Number: IT-BIOGEN-2016BI00302297

PATIENT
  Age: 60 Year
  Sex: Female

DRUGS (3)
  1. FROBEN [Concomitant]
     Active Substance: FLURBIPROFEN
     Indication: FATIGUE
     Dosage: 2/3 DFS
     Route: 065
  2. FROBEN [Concomitant]
     Active Substance: FLURBIPROFEN
     Indication: INFLUENZA LIKE ILLNESS
  3. PLEGRIDY [Suspect]
     Active Substance: PEGINTERFERON BETA-1A
     Indication: MULTIPLE SCLEROSIS
     Route: 065
     Dates: start: 201608

REACTIONS (2)
  - Fatigue [Recovered/Resolved]
  - Influenza like illness [Recovered/Resolved]

NARRATIVE: CASE EVENT DATE: 201608
